FAERS Safety Report 8988812 (Version 1)
Quarter: 2012Q4

REPORT INFORMATION
  Report Type: Spontaneous
  Country: US (occurrence: None)
  Receive Date: 20121218
  Receipt Date: 20121218
  Transmission Date: 20130627
  Serious: Yes (Hospitalization)
  Sender: FDA-Public Use
  Company Number: DKLU1087153

PATIENT
  Age: 56 Year
  Sex: Male

DRUGS (2)
  1. ONFI (CLOBAZAM) (CLOBAZAM) (10 MG, TABLET) [Suspect]
     Indication: COMPLEX PARTIAL SEIZURES
     Route: 048
     Dates: start: 201210
  2. ONFI (CLOBAZAM) (CLOBAZAM) (10 MG, TABLET) [Suspect]
     Indication: EPILEPSY
     Route: 048
     Dates: start: 201210

REACTIONS (6)
  - Confusional state [None]
  - Fall [None]
  - Oedema peripheral [None]
  - Disturbance in attention [None]
  - Dysuria [None]
  - Speech disorder [None]
